FAERS Safety Report 9172895 (Version 2)
Quarter: 2013Q2

REPORT INFORMATION
  Report Type: Spontaneous
  Country: DE (occurrence: DE)
  Receive Date: 20130319
  Receipt Date: 20130409
  Transmission Date: 20140414
  Serious: Yes (Other)
  Sender: FDA-Public Use
  Company Number: DE-BRISTOL-MYERS SQUIBB COMPANY-17456237

PATIENT
  Age: 75 Year
  Sex: Female
  Weight: 82 kg

DRUGS (5)
  1. ELIQUIS [Suspect]
     Indication: ATRIAL FIBRILLATION
     Dosage: 2.5-2X1PER D
     Route: 048
     Dates: start: 20130218
  2. ACETYLSALICYLIC ACID [Concomitant]
  3. LISINOPRIL [Concomitant]
  4. L-THYROXINE [Concomitant]
  5. MULTAQ [Concomitant]
     Route: 048
     Dates: start: 20130218

REACTIONS (2)
  - Glomerular filtration rate decreased [Unknown]
  - Blood creatinine increased [Unknown]
